FAERS Safety Report 6558895-1 (Version None)
Quarter: 2010Q1

REPORT INFORMATION
  Report Type: 
  Country: None (occurrence: None)
  Receive Date: 20100129
  Receipt Date: 20100128
  Transmission Date: 20100710
  Serious: Yes (Other)
  Sender: FDA-Public Use
  Company Number: HQWYE763403AUG06

PATIENT
  Sex: Female

DRUGS (6)
  1. PREMPRO [Suspect]
  2. PROVERA [Suspect]
  3. ESTRADERM [Suspect]
  4. ESTRACE [Suspect]
  5. PREMARIN [Suspect]
  6. ORTHO-EST [Suspect]

REACTIONS (1)
  - CONTRALATERAL BREAST CANCER [None]
